FAERS Safety Report 20637330 (Version 2)
Quarter: 2022Q1

REPORT INFORMATION
  Report Type: Report from Study
  Country: FR (occurrence: FR)
  Receive Date: 20220325
  Receipt Date: 20220331
  Transmission Date: 20220423
  Serious: Yes (Other)
  Sender: FDA-Public Use
  Company Number: FR-GILEAD-2022-0563803

PATIENT
  Sex: Female
  Weight: 50 kg

DRUGS (4)
  1. SACITUZUMAB GOVITECAN [Suspect]
     Active Substance: SACITUZUMAB GOVITECAN
     Indication: Triple negative breast cancer
     Dosage: 10 MG/KG, C1D1 AND C1D8
     Route: 065
     Dates: start: 20211125, end: 20211203
  2. SACITUZUMAB GOVITECAN [Suspect]
     Active Substance: SACITUZUMAB GOVITECAN
     Dosage: 10 MG/KG, C2D1 AND C2D8
     Route: 065
     Dates: start: 20211217, end: 20211224
  3. SACITUZUMAB GOVITECAN [Suspect]
     Active Substance: SACITUZUMAB GOVITECAN
     Dosage: 10 MG C3D1 AND C3D8
     Route: 065
     Dates: start: 20220107, end: 20220114
  4. SACITUZUMAB GOVITECAN [Suspect]
     Active Substance: SACITUZUMAB GOVITECAN
     Dosage: 10 MG/KG, C4D1 AND C4D8
     Route: 065
     Dates: start: 20220128, end: 20220204

REACTIONS (2)
  - Disease progression [Unknown]
  - Product use issue [Unknown]
